FAERS Safety Report 6602592-0 (Version None)
Quarter: 2010Q1

REPORT INFORMATION
  Report Type: 
  Country: None (occurrence: None)
  Receive Date: 20100225
  Receipt Date: 20100224
  Transmission Date: 20100710
  Serious: Yes (Other)
  Sender: FDA-Public Use
  Company Number: CH-MERCK-1002CHE00021

PATIENT
  Age: 59 Year
  Sex: Male

DRUGS (1)
  1. MODURETIC 5-50 [Suspect]
     Indication: HYPERTENSION
     Route: 048
     Dates: end: 20060101

REACTIONS (1)
  - SYSTEMIC LUPUS ERYTHEMATOSUS [None]
